FAERS Safety Report 16656003 (Version 1)
Quarter: 2019Q3

REPORT INFORMATION
  Report Type: Spontaneous
  Country: US (occurrence: US)
  Receive Date: 20190801
  Receipt Date: 20190801
  Transmission Date: 20191004
  Serious: No
  Sender: FDA-Public Use
  Company Number: US-MACLEODS PHARMACEUTICALS US LTD-MAC2019022287

PATIENT

DRUGS (1)
  1. VALSARTAN AND HYDROCHLOROTHIAZIDE TABLET 320 MG/25 MG, [Suspect]
     Active Substance: HYDROCHLOROTHIAZIDE\VALSARTAN
     Indication: HYPERTENSION
     Dosage: VALSARTAN 320 MILLIGRAM AND HYDROCHLOROTHIAZIDE 25 MILLIGRAM, QD, 1 TABLET IN THE MORNING
     Route: 048

REACTIONS (4)
  - Product size issue [Unknown]
  - Drug ineffective [Unknown]
  - Blood pressure increased [Unknown]
  - Product colour issue [Unknown]
